FAERS Safety Report 11380476 (Version 1)
Quarter: 2015Q3

REPORT INFORMATION
  Report Type: Spontaneous
  Country: US (occurrence: US)
  Receive Date: 20150814
  Receipt Date: 20150814
  Transmission Date: 20151125
  Serious: No
  Sender: FDA-Public Use
  Company Number: US-JNJFOC-20150310574

PATIENT
  Age: 79 Year
  Sex: Male
  Weight: 83.92 kg

DRUGS (2)
  1. IMODIUM A-D [Suspect]
     Active Substance: LOPERAMIDE HYDROCHLORIDE
     Route: 048
  2. IMODIUM A-D [Suspect]
     Active Substance: LOPERAMIDE HYDROCHLORIDE
     Indication: DIARRHOEA
     Route: 048

REACTIONS (5)
  - Dysgeusia [Unknown]
  - Therapeutic response decreased [Unknown]
  - Intentional product use issue [Unknown]
  - Product quality issue [Unknown]
  - Incorrect dose administered [Unknown]
